FAERS Safety Report 10073311 (Version 1)
Quarter: 2014Q2

REPORT INFORMATION
  Report Type: Spontaneous
  Country: ES (occurrence: ES)
  Receive Date: 20140411
  Receipt Date: 20140411
  Transmission Date: 20141212
  Serious: Yes (Other)
  Sender: FDA-Public Use
  Company Number: ES-GLAXOSMITHKLINE-B0984978A

PATIENT
  Age: 70 Year
  Sex: Male

DRUGS (2)
  1. DUODART [Suspect]
     Indication: PRODUCT USED FOR UNKNOWN INDICATION
     Dosage: 1CAP PER DAY
     Route: 048
     Dates: start: 20140219, end: 20140224
  2. AVIDART [Concomitant]
     Dates: start: 20140123, end: 20140211

REACTIONS (1)
  - Cardiac failure [Recovered/Resolved]
